FAERS Safety Report 13093084 (Version 1)
Quarter: 2017Q1

REPORT INFORMATION
  Report Type: Spontaneous
  Country: US (occurrence: US)
  Receive Date: 20170106
  Receipt Date: 20170106
  Transmission Date: 20170428
  Serious: Yes (Life-Threatening)
  Sender: FDA-Public Use
  Company Number: None

PATIENT
  Age: 61 Year
  Sex: Male

DRUGS (1)
  1. AMIODARONE [Suspect]
     Active Substance: AMIODARONE
     Indication: ATRIAL FIBRILLATION
     Route: 048
     Dates: start: 20100413, end: 20100422

REACTIONS (4)
  - Respiratory failure [None]
  - Toxicity to various agents [None]
  - Pulmonary haemorrhage [None]
  - Haemoptysis [None]

NARRATIVE: CASE EVENT DATE: 20100422
